FAERS Safety Report 18918229 (Version 1)
Quarter: 2021Q1

REPORT INFORMATION
  Report Type: Spontaneous
  Country: DE (occurrence: DE)
  Receive Date: 20210219
  Receipt Date: 20210219
  Transmission Date: 20210420
  Serious: Yes (Hospitalization)
  Sender: FDA-Public Use
  Company Number: DE-EISAI MEDICAL RESEARCH-EC-2021-088124

PATIENT
  Age: 41 Year
  Sex: Female
  Weight: 60 kg

DRUGS (5)
  1. LEVETIRACETAM. [Suspect]
     Active Substance: LEVETIRACETAM
     Dates: start: 20210212, end: 20210212
  2. FYCOMPA [Suspect]
     Active Substance: PERAMPANEL
     Indication: PRODUCT USED FOR UNKNOWN INDICATION
     Route: 048
     Dates: end: 20210211
  3. LACOSAMIDE. [Concomitant]
     Active Substance: LACOSAMIDE
     Indication: PRODUCT USED FOR UNKNOWN INDICATION
     Dosage: FIRST DOSE 1500 MG AND SECOND DOSE 1000 MG DAILY
  4. FYCOMPA [Suspect]
     Active Substance: PERAMPANEL
     Dosage: 3 ? 4 12 MG TABLETS
     Route: 048
     Dates: start: 20210212, end: 20210212
  5. LEVETIRACETAM. [Suspect]
     Active Substance: LEVETIRACETAM
     Indication: PRODUCT USED FOR UNKNOWN INDICATION
     Dates: end: 20210211

REACTIONS (4)
  - Hypotension [Recovered/Resolved]
  - Suicidal ideation [Unknown]
  - Agitation [Recovering/Resolving]
  - Intentional overdose [Recovered/Resolved]

NARRATIVE: CASE EVENT DATE: 202102
